FAERS Safety Report 25584174 (Version 1)
Quarter: 2025Q3

REPORT INFORMATION
  Report Type: Spontaneous
  Country: US (occurrence: US)
  Receive Date: 20250721
  Receipt Date: 20250721
  Transmission Date: 20251021
  Serious: No
  Sender: AUROBINDO
  Company Number: US-AUROBINDO-AUR-APL-2024-045778

PATIENT
  Age: 75 Year
  Sex: Male

DRUGS (2)
  1. AMIODARONE HYDROCHLORIDE [Suspect]
     Active Substance: AMIODARONE HYDROCHLORIDE
     Indication: Atrial fibrillation
     Route: 042
     Dates: end: 20240904
  2. COLCHICINE [Concomitant]
     Active Substance: COLCHICINE
     Indication: Gout
     Route: 065

REACTIONS (3)
  - Malaise [Unknown]
  - Hypotension [Unknown]
  - Drug interaction [Unknown]
